FAERS Safety Report 6062948-4 (Version None)
Quarter: 2009Q1

REPORT INFORMATION
  Report Type: 
  Country: None (occurrence: None)
  Receive Date: 20090203
  Receipt Date: 20090129
  Transmission Date: 20090719
  Serious: Yes (Hospitalization)
  Sender: FDA-Public Use
  Company Number: A0759194A

PATIENT
  Age: 44 Year
  Sex: Male
  Weight: 108.2 kg

DRUGS (3)
  1. AVANDIA [Suspect]
     Dosage: 4MG PER DAY
     Route: 065
     Dates: start: 20060101, end: 20070601
  2. GLUCOPHAGE [Concomitant]
     Dates: start: 20040101
  3. METFORMIN [Concomitant]
     Dates: start: 20040101

REACTIONS (6)
  - ANXIETY [None]
  - CARDIAC DISORDER [None]
  - FATIGUE [None]
  - MYOCARDIAL INFARCTION [None]
  - MYOCARDIAL ISCHAEMIA [None]
  - OEDEMA [None]
